FAERS Safety Report 18314125 (Version 1)
Quarter: 2020Q3

REPORT INFORMATION
  Report Type: Spontaneous
  Country: ES (occurrence: ES)
  Receive Date: 20200925
  Receipt Date: 20200925
  Transmission Date: 20201103
  Serious: Yes (Hospitalization)
  Sender: FDA-Public Use
  Company Number: NVSC2020ES255498

PATIENT
  Age: 84 Year
  Sex: Female

DRUGS (2)
  1. FENITOINA [Interacting]
     Active Substance: PHENYTOIN
     Indication: EPILEPSY
     Dosage: 100 G, Q8H (1?1?1)
     Route: 048
     Dates: start: 20191112
  2. LEVETIRACETAM. [Suspect]
     Active Substance: LEVETIRACETAM
     Indication: EPILEPSY
     Dosage: 750 MG, Q12H (750 MG 1?0?1)
     Route: 048
     Dates: start: 20190130

REACTIONS (2)
  - Confusional state [Recovered/Resolved]
  - Inappropriate antidiuretic hormone secretion [Not Recovered/Not Resolved]

NARRATIVE: CASE EVENT DATE: 20200708
